FAERS Safety Report 17900156 (Version 1)
Quarter: 2020Q2

REPORT INFORMATION
  Report Type: Spontaneous
  Country: US (occurrence: US)
  Receive Date: 20200615
  Receipt Date: 20200615
  Transmission Date: 20200714
  Serious: Yes (Hospitalization, Other)
  Sender: FDA-Public Use
  Company Number: None

PATIENT

DRUGS (1)
  1. AMITRIPTYLINE HYDROCHLORIDE 75MG [Suspect]
     Active Substance: AMITRIPTYLINE HYDROCHLORIDE
     Dates: start: 20200604, end: 20200604

REACTIONS (5)
  - Drug ineffective [None]
  - Product substitution issue [None]
  - Vision blurred [None]
  - Migraine [None]
  - Dizziness [None]

NARRATIVE: CASE EVENT DATE: 20200604
